FAERS Safety Report 5049779-9 (Version None)
Quarter: 2006Q3

REPORT INFORMATION
  Report Type: 
  Country: None (occurrence: None)
  Receive Date: 20060707
  Receipt Date: 20060622
  Transmission Date: 20061208
  Serious: Yes (Hospitalization)
  Sender: FDA-Public Use
  Company Number: 2006CL000678

PATIENT
  Age: 60 Year
  Sex: Male
  Weight: 107.94 kg

DRUGS (8)
  1. BYETTA [Suspect]
     Indication: DIABETES MELLITUS NON-INSULIN-DEPENDENT
     Dosage: 10 MCG; SC;  5 MCG; BID; SC
     Route: 058
     Dates: start: 20060228, end: 20060327
  2. BYETTA [Suspect]
     Indication: DIABETES MELLITUS NON-INSULIN-DEPENDENT
     Dosage: 10 MCG; SC;  5 MCG; BID; SC
     Route: 058
     Dates: start: 20060328
  3. HUMAPEN ERGO [Concomitant]
  4. ZOCOR [Concomitant]
  5. HYZAAR [Concomitant]
  6. METFORMIN [Concomitant]
  7. NORVASC [Concomitant]
  8. PROSCAR [Concomitant]

REACTIONS (4)
  - ABDOMINAL PAIN UPPER [None]
  - DIARRHOEA HAEMORRHAGIC [None]
  - GASTROENTERITIS [None]
  - HAEMORRHOIDAL HAEMORRHAGE [None]
